FAERS Safety Report 4969188-8 (Version None)
Quarter: 2006Q2

REPORT INFORMATION
  Report Type: 
  Country: None (occurrence: None)
  Receive Date: 20060411
  Receipt Date: 20060105
  Transmission Date: 20061013
  Serious: Yes (Hospitalization)
  Sender: FDA-Public Use
  Company Number: US-BRISTOL-MYERS SQUIBB COMPANY-13238027

PATIENT
  Age: 65 Year
  Sex: Male
  Weight: 117 kg

DRUGS (7)
  1. CARBOPLATIN [Suspect]
     Indication: NEOPLASM MALIGNANT
     Route: 042
  2. TAXOL [Suspect]
     Indication: NEOPLASM MALIGNANT
     Route: 042
  3. GLIMEPIRIDE [Concomitant]
  4. DIGOXIN [Concomitant]
  5. HYDROCHLOROTHIAZIDE [Concomitant]
  6. CELEBREX [Concomitant]
  7. COUMADIN [Concomitant]

REACTIONS (1)
  - PANCYTOPENIA [None]
